FAERS Safety Report 18327467 (Version 1)
Quarter: 2020Q3

REPORT INFORMATION
  Report Type: Spontaneous
  Country: US (occurrence: US)
  Receive Date: 20200929
  Receipt Date: 20200929
  Transmission Date: 20201103
  Serious: Yes (Hospitalization, Other)
  Sender: FDA-Public Use
  Company Number: US-GILEAD-2020-0496563

PATIENT
  Age: 67 Year
  Sex: Male
  Weight: 141.7 kg

DRUGS (13)
  1. PROPOFOL. [Concomitant]
     Active Substance: PROPOFOL
     Dosage: UNK
     Dates: start: 20200917
  2. AZITHROMYCIN ANHYDROUS. [Concomitant]
     Active Substance: AZITHROMYCIN ANHYDROUS
     Dosage: UNK
     Dates: start: 20200914, end: 20200918
  3. MORPHINE [Concomitant]
     Active Substance: MORPHINE
     Dosage: UNK
     Dates: start: 20200914, end: 20200920
  4. CEFTRIAXONE. [Concomitant]
     Active Substance: CEFTRIAXONE
     Dosage: UNK
     Dates: start: 20200914, end: 20200920
  5. DEXAMETHASONE. [Concomitant]
     Active Substance: DEXAMETHASONE
     Dosage: UNK
     Dates: start: 20200915
  6. ENOXAPARIN [Concomitant]
     Active Substance: ENOXAPARIN
     Dosage: UNK
     Dates: start: 20200914, end: 20200917
  7. HEPARIN [Concomitant]
     Active Substance: HEPARIN SODIUM
     Dosage: UNK
     Dates: start: 20200917
  8. PANTOPRAZOLE [Concomitant]
     Active Substance: PANTOPRAZOLE
     Dosage: UNK
     Dates: start: 20200918
  9. LABETALOL [Concomitant]
     Active Substance: LABETALOL\LABETALOL HYDROCHLORIDE
     Dosage: UNK
     Dates: start: 20200916, end: 20200917
  10. SUCCINYLCHOLINE [SUXAMETHONIUM] [Concomitant]
     Active Substance: SUCCINYLCHOLINE
     Dosage: UNK
     Dates: start: 20200917, end: 20200917
  11. REMDESIVIR. [Suspect]
     Active Substance: REMDESIVIR
     Indication: COVID-19
     Dosage: 100 MG, QD
     Route: 041
     Dates: start: 20200914, end: 20200919
  12. FENTANYL. [Concomitant]
     Active Substance: FENTANYL
     Dosage: UNK
     Dates: start: 20200918
  13. MIDAZOLAM. [Concomitant]
     Active Substance: MIDAZOLAM
     Dosage: UNK
     Dates: start: 20200917

REACTIONS (2)
  - Acute kidney injury [Not Recovered/Not Resolved]
  - Transaminases increased [Recovering/Resolving]

NARRATIVE: CASE EVENT DATE: 20200920
